FAERS Safety Report 13688286 (Version 1)
Quarter: 2017Q2

REPORT INFORMATION
  Report Type: Spontaneous
  Country: US (occurrence: US)
  Receive Date: 20170626
  Receipt Date: 20170626
  Transmission Date: 20170830
  Serious: No
  Sender: FDA-Public Use
  Company Number: US-TEVA-733422ACC

PATIENT
  Sex: Female

DRUGS (3)
  1. LAMOTRIGINE TABLET [Suspect]
     Active Substance: LAMOTRIGINE
  2. LAMOTRIGINE TABLET [Suspect]
     Active Substance: LAMOTRIGINE
  3. LAMOTRIGINE TABLET [Suspect]
     Active Substance: LAMOTRIGINE
     Dates: start: 201609

REACTIONS (1)
  - Rash [Unknown]

NARRATIVE: CASE EVENT DATE: 201605
